FAERS Safety Report 9242476 (Version 1)
Quarter: 2013Q2

REPORT INFORMATION
  Report Type: Spontaneous
  Country: US (occurrence: US)
  Receive Date: 20130419
  Receipt Date: 20130419
  Transmission Date: 20140414
  Serious: Yes (Hospitalization, Other)
  Sender: FDA-Public Use
  Company Number: US-009507513-2010SP043244

PATIENT
  Age: 22 Year
  Sex: Female
  Weight: 65.77 kg

DRUGS (5)
  1. NUVARING [Suspect]
     Indication: CONTRACEPTION
     Dates: start: 200405, end: 200808
  2. NUVARING [Suspect]
     Dates: start: 200405, end: 200808
  3. NUVARING [Suspect]
     Dates: start: 200405, end: 200808
  4. NUVARING [Suspect]
     Dates: start: 200405, end: 200808
  5. COUMADIN [Suspect]
     Indication: ANTICOAGULANT THERAPY

REACTIONS (15)
  - Abortion [Recovered/Resolved]
  - Ovarian cyst [Unknown]
  - Pulmonary embolism [Recovered/Resolved]
  - Sinus disorder [Unknown]
  - Wisdom teeth removal [Unknown]
  - Infection [Unknown]
  - Unintended pregnancy [Recovered/Resolved]
  - Migraine [Unknown]
  - Appendicectomy [Unknown]
  - Fistula repair [Unknown]
  - Breast operation [Unknown]
  - Omphalitis [Unknown]
  - Depression [Unknown]
  - Nephrolithiasis [Unknown]
  - Thyroid cyst [Unknown]
